FAERS Safety Report 11216269 (Version 1)
Quarter: 2015Q2

REPORT INFORMATION
  Report Type: Spontaneous
  Country: US (occurrence: US)
  Receive Date: 20150624
  Receipt Date: 20150624
  Transmission Date: 20150821
  Serious: Yes (Other)
  Sender: FDA-Public Use
  Company Number: US-ELI_LILLY_AND_COMPANY-US201506006867

PATIENT
  Sex: Female

DRUGS (3)
  1. CYMBALTA [Suspect]
     Active Substance: DULOXETINE HYDROCHLORIDE
     Indication: PAIN
     Dosage: UNK
     Route: 065
     Dates: start: 201001, end: 201301
  2. CYMBALTA [Suspect]
     Active Substance: DULOXETINE HYDROCHLORIDE
     Indication: DEPRESSION
  3. CYMBALTA [Suspect]
     Active Substance: DULOXETINE HYDROCHLORIDE
     Indication: ANXIETY

REACTIONS (12)
  - Drug withdrawal syndrome [Unknown]
  - Agitation [Unknown]
  - Dizziness [Unknown]
  - Rash [Unknown]
  - Headache [Unknown]
  - Skin irritation [Unknown]
  - Mental disorder [Unknown]
  - Insomnia [Unknown]
  - Paraesthesia [Unknown]
  - Mood swings [Unknown]
  - Diarrhoea [Unknown]
  - Fatigue [Unknown]
